FAERS Safety Report 12744605 (Version 1)
Quarter: 2016Q3

REPORT INFORMATION
  Report Type: Spontaneous
  Country: US (occurrence: US)
  Receive Date: 20160914
  Receipt Date: 20160914
  Transmission Date: 20161109
  Serious: No
  Sender: FDA-Public Use
  Company Number: US-JAZZ-2016-US-009164

PATIENT
  Sex: Male

DRUGS (5)
  1. MELATONIN [Concomitant]
     Active Substance: MELATONIN
  2. XYREM [Suspect]
     Active Substance: SODIUM OXYBATE
     Dosage: DOSE ADJUSTMENTS
     Route: 048
  3. PROVIGIL [Concomitant]
     Active Substance: MODAFINIL
  4. XYREM [Suspect]
     Active Substance: SODIUM OXYBATE
     Indication: NARCOLEPSY
     Dosage: 2.25 G, BID
     Route: 048
     Dates: start: 201304, end: 201304
  5. XYREM [Suspect]
     Active Substance: SODIUM OXYBATE
     Dosage: 5 G, BID
     Route: 048
     Dates: start: 201308

REACTIONS (2)
  - Blood bilirubin increased [Unknown]
  - Vitamin D decreased [Unknown]

NARRATIVE: CASE EVENT DATE: 2015
